FAERS Safety Report 13764881 (Version 3)
Quarter: 2018Q2

REPORT INFORMATION
  Report Type: Spontaneous
  Country: US (occurrence: US)
  Receive Date: 20170718
  Receipt Date: 20180622
  Transmission Date: 20180711
  Serious: Yes (Hospitalization, Other)
  Sender: FDA-Public Use
  Company Number: US-BAUSCH-BL-2017-021469

PATIENT
  Sex: Male
  Weight: 108.96 kg

DRUGS (2)
  1. XIFAXAN [Suspect]
     Active Substance: RIFAXIMIN
     Indication: AMMONIA INCREASED
     Route: 048
  2. XIFAXAN [Suspect]
     Active Substance: RIFAXIMIN
     Indication: HEPATIC ENCEPHALOPATHY

REACTIONS (8)
  - Hospitalisation [Unknown]
  - Aphasia [Unknown]
  - Ammonia increased [Not Recovered/Not Resolved]
  - Hepatic encephalopathy [Unknown]
  - Product storage error [Recovered/Resolved]
  - Drug effect variable [Recovered/Resolved]
  - Product supply issue [Recovered/Resolved]
  - Pneumonia [Recovered/Resolved]
